FAERS Safety Report 6359812-X (Version None)
Quarter: 2009Q3

REPORT INFORMATION
  Report Type: 
  Country: None (occurrence: None)
  Receive Date: 20090917
  Receipt Date: 20090911
  Transmission Date: 20100115
  Serious: Yes (Death)
  Sender: FDA-Public Use
  Company Number: A0806928A

PATIENT
  Sex: Female

DRUGS (2)
  1. AVANDIA [Suspect]
     Dosage: 8MG UNKNOWN
     Route: 048
  2. INSULIN [Suspect]
     Route: 058

REACTIONS (1)
  - MYOCARDIAL INFARCTION [None]
